FAERS Safety Report 14776791 (Version 1)
Quarter: 2018Q2

REPORT INFORMATION
  Report Type: Report from Study
  Country: DE (occurrence: DE)
  Receive Date: 20180419
  Receipt Date: 20180419
  Transmission Date: 20180711
  Serious: Yes (Hospitalization)
  Sender: FDA-Public Use
  Company Number: DE-ROCHE-2107480

PATIENT
  Age: 58 Year
  Sex: Female
  Weight: 82 kg

DRUGS (3)
  1. GEMCITABINE [Suspect]
     Active Substance: GEMCITABINE\GEMCITABINE HYDROCHLORIDE
     Indication: MALIGNANT PERITONEAL NEOPLASM
     Dosage: LAST DOSE PRIOR TO EVENT ONSET ON 22/JUN/2015;
     Route: 042
     Dates: start: 20150302
  2. CARBOPLATIN. [Suspect]
     Active Substance: CARBOPLATIN
     Indication: MALIGNANT PERITONEAL NEOPLASM
     Dosage: LAST DOSE PRIOR TO EVENT ONSET ON 15/JUN/2015; DOSE 4 AUC
     Route: 042
     Dates: start: 20150302
  3. BEVACIZUMAB. [Suspect]
     Active Substance: BEVACIZUMAB
     Indication: MALIGNANT PERITONEAL NEOPLASM
     Dosage: LAST DOSE PRIOR TO EVENT ONSET ON 01/JUN/2017
     Route: 042
     Dates: start: 20150302

REACTIONS (1)
  - Lymphadenectomy [Recovered/Resolved]

NARRATIVE: CASE EVENT DATE: 20170724
